FAERS Safety Report 7230471-7 (Version None)
Quarter: 2011Q1

REPORT INFORMATION
  Report Type: 
  Country: None (occurrence: None)
  Receive Date: 20110118
  Receipt Date: 20110107
  Transmission Date: 20110831
  Serious: Yes (Hospitalization)
  Sender: FDA-Public Use
  Company Number: US-NOVOPROD-321285

PATIENT
  Sex: Male

DRUGS (2)
  1. NOVOLOG [Suspect]
     Indication: BLOOD GLUCOSE INCREASED
     Dosage: UNKNOWN
     Route: 058
     Dates: start: 20100301
  2. LEVEMIR [Suspect]
     Indication: BLOOD GLUCOSE INCREASED
     Dosage: UNKNOWN
     Route: 058
     Dates: start: 20100301

REACTIONS (1)
  - OSMOTIC DEMYELINATION SYNDROME [None]
